FAERS Safety Report 4616505-4 (Version None)
Quarter: 2005Q1

REPORT INFORMATION
  Report Type: 
  Country: None (occurrence: None)
  Receive Date: 20050318
  Receipt Date: 20050308
  Transmission Date: 20050727
  Serious: Yes (Other)
  Sender: FDA-Public Use
  Company Number: 2005021996

PATIENT
  Age: 74 Year
  Sex: Male

DRUGS (2)
  1. CELEBREX [Suspect]
     Indication: PROSTATITIS
     Dosage: 200 MG (200 MG, 1 IN 1 D)
     Dates: start: 20010101
  2. ALL OTHER THERAPEUTIC PRODUCTS (ALL OTHER THERAPEUTIC PRODUCTS) [Suspect]
     Indication: PROSTATITIS

REACTIONS (2)
  - PLATELET COUNT INCREASED [None]
  - POLYCYTHAEMIA VERA [None]
